FAERS Safety Report 6739198-9 (Version None)
Quarter: 2010Q2

REPORT INFORMATION
  Report Type: 
  Country: None (occurrence: None)
  Receive Date: 20100525
  Receipt Date: 20100401
  Transmission Date: 20101027
  Serious: No
  Sender: FDA-Public Use
  Company Number: A0851803A

PATIENT
  Age: 81 Year
  Sex: Male

DRUGS (3)
  1. VERAMYST [Suspect]
     Indication: COUGH
     Dosage: 1SPR TWICE PER DAY
     Route: 045
     Dates: start: 20100310, end: 20100323
  2. CALAN [Concomitant]
  3. LIPITOR [Concomitant]

REACTIONS (1)
  - EPISTAXIS [None]
